FAERS Safety Report 5377657-4 (Version None)
Quarter: 2007Q3

REPORT INFORMATION
  Report Type: 
  Country: None (occurrence: None)
  Receive Date: 20070703
  Receipt Date: 20070626
  Transmission Date: 20080115
  Serious: Yes (Other)
  Sender: FDA-Public Use
  Company Number: FR-PFIZER INC-2007037754

PATIENT
  Sex: Male
  Weight: 78 kg

DRUGS (7)
  1. LYRICA [Suspect]
     Indication: PAIN
  2. LEVOTHYROXINE SODIUM [Concomitant]
     Route: 048
  3. SECTRAL [Concomitant]
     Route: 048
  4. OMEPRAZOLE [Concomitant]
  5. TRAMADOL HCL [Concomitant]
  6. TRAMADOL HCL [Concomitant]
     Route: 048
  7. CLONAZEPAM [Concomitant]
     Route: 048

REACTIONS (10)
  - DIZZINESS [None]
  - DRUG INEFFECTIVE [None]
  - FALL [None]
  - FATIGUE [None]
  - GAIT DISTURBANCE [None]
  - HEADACHE [None]
  - INITIAL INSOMNIA [None]
  - IRRITABILITY [None]
  - RHINITIS ALLERGIC [None]
  - VERTIGO [None]
